FAERS Safety Report 7777031-7 (Version None)
Quarter: 2011Q3

REPORT INFORMATION
  Report Type: 
  Country: None (occurrence: None)
  Receive Date: 20110926
  Receipt Date: 20110926
  Transmission Date: 20111222
  Serious: Yes (Other)
  Sender: FDA-Public Use
  Company Number: None

PATIENT
  Age: 45 Year
  Sex: Female
  Weight: 83.914 kg

DRUGS (1)
  1. RECLAST [Suspect]
     Indication: OSTEOPOROSIS
     Route: 042

REACTIONS (4)
  - INFLUENZA LIKE ILLNESS [None]
  - BURNING SENSATION [None]
  - PAIN [None]
  - UNEVALUABLE EVENT [None]
